FAERS Safety Report 5863791-9 (Version None)
Quarter: 2008Q3

REPORT INFORMATION
  Report Type: 
  Country: None (occurrence: None)
  Receive Date: 20080827
  Receipt Date: 20080815
  Transmission Date: 20090109
  Serious: Yes (Other)
  Sender: FDA-Public Use
  Company Number: TRP_01043_2008

PATIENT
  Sex: Male

DRUGS (2)
  1. RIBASPHERE [Suspect]
     Indication: HEPATITIS C VIRUS TEST
     Dosage: (1000 MG ORAL), (800 MG ORAL)
     Route: 048
     Dates: start: 20071011
  2. PEGASYS [Suspect]
     Indication: HEPATITIS C VIRUS TEST
     Dosage: 135 MG SUBCUNTANEOUS), (90 MG SUBCUTANEOUS)
     Route: 058
     Dates: start: 20071011

REACTIONS (12)
  - COGNITIVE DISORDER [None]
  - GASTROENTERITIS VIRAL [None]
  - GLOSSODYNIA [None]
  - HEADACHE [None]
  - MALIGNANT MELANOMA [None]
  - PRURITUS [None]
  - PSORIASIS [None]
  - RED BLOOD CELL COUNT DECREASED [None]
  - STOMACH DISCOMFORT [None]
  - STOMATITIS [None]
  - VOMITING [None]
  - WEIGHT DECREASED [None]
